FAERS Safety Report 12606540 (Version 3)
Quarter: 2016Q3

REPORT INFORMATION
  Report Type: Spontaneous
  Country: US (occurrence: US)
  Receive Date: 20160729
  Receipt Date: 20160819
  Transmission Date: 20161109
  Serious: Yes (Death, Hospitalization, Other)
  Sender: FDA-Public Use
  Company Number: US-ASTELLAS-2016US029095

PATIENT
  Age: 39 Year
  Sex: Male

DRUGS (3)
  1. AMPHOTERICIN B DEOXYCHOLATE [Suspect]
     Active Substance: AMPHOTERICIN B
     Indication: MYCETOMA MYCOTIC
     Dosage: 0.7 MG/KG, ONCE DAILY
     Route: 065
  2. FLUCONAZOLE. [Concomitant]
     Active Substance: FLUCONAZOLE
     Indication: MYCETOMA MYCOTIC
     Dosage: UNK UNK, UNKNOWN FREQ.
     Route: 065
  3. MYCAMINE [Suspect]
     Active Substance: MICAFUNGIN SODIUM
     Indication: MYCETOMA MYCOTIC
     Dosage: 100 MG, ONCE DAILY (EVERY 24 HOURS)
     Route: 042

REACTIONS (4)
  - Candida infection [Not Recovered/Not Resolved]
  - Mycetoma mycotic [Not Recovered/Not Resolved]
  - Death [Fatal]
  - Liver injury [Not Recovered/Not Resolved]

NARRATIVE: CASE EVENT DATE: 20150906
